FAERS Safety Report 8423025-8 (Version None)
Quarter: 2012Q2

REPORT INFORMATION
  Report Type: 
  Country: None (occurrence: None)
  Receive Date: 20120608
  Receipt Date: 20120509
  Transmission Date: 20120825
  Serious: Yes (Other)
  Sender: FDA-Public Use
  Company Number: US-SANOFI-AVENTIS-2012SA033945

PATIENT
  Age: 68 Year
  Sex: Male

DRUGS (6)
  1. NORVASC [Concomitant]
  2. COZAAR [Concomitant]
  3. ATENOLOL [Concomitant]
  4. PREVACID [Concomitant]
  5. PLAVIX [Suspect]
     Dates: start: 20080101
  6. ASPIRIN [Concomitant]

REACTIONS (6)
  - CHEST PAIN [None]
  - EYELID PTOSIS [None]
  - CONFUSIONAL STATE [None]
  - PARAESTHESIA [None]
  - HEADACHE [None]
  - HYPOAESTHESIA [None]
